FAERS Safety Report 16675083 (Version 2)
Quarter: 2019Q4

REPORT INFORMATION
  Report Type: Report from Study
  Country: US (occurrence: US)
  Receive Date: 20190806
  Receipt Date: 20191009
  Transmission Date: 20200122
  Serious: Yes (Other)
  Sender: FDA-Public Use
  Company Number: US-ALEXION PHARMACEUTICALS INC.-A201911655

PATIENT
  Sex: Female

DRUGS (2)
  1. STRENSIQ [Suspect]
     Active Substance: ASFOTASE ALFA
     Indication: PRODUCT USED FOR UNKNOWN INDICATION
     Dosage: UNK
     Route: 065
  2. PLAQUENIL                          /00072602/ [Suspect]
     Active Substance: HYDROXYCHLOROQUINE DIPHOSPHATE
     Indication: PRODUCT USED FOR UNKNOWN INDICATION
     Dosage: UNK
     Route: 065

REACTIONS (10)
  - Toxicity to various agents [Unknown]
  - Nasopharyngitis [Recovered/Resolved]
  - Muscle strain [Recovered/Resolved]
  - Lupus nephritis [Unknown]
  - Retinal degeneration [Unknown]
  - Testicular pain [Recovering/Resolving]
  - Body dysmorphic disorder [Unknown]
  - Lipodystrophy acquired [Unknown]
  - Proteinuria [Unknown]
  - Hydrocele [Unknown]

NARRATIVE: CASE EVENT DATE: 201909
